FAERS Safety Report 9831047 (Version 4)
Quarter: 2015Q2

REPORT INFORMATION
  Report Type: Report from Study
  Country: DE (occurrence: DE)
  Receive Date: 20140120
  Receipt Date: 20150619
  Transmission Date: 20150821
  Serious: Yes (Death, Other)
  Sender: FDA-Public Use
  Company Number: PHHY2014DE005272

PATIENT
  Sex: Male
  Weight: 80 kg

DRUGS (1)
  1. ICL670A [Suspect]
     Active Substance: DEFERASIROX
     Indication: MYELODYSPLASTIC SYNDROME
     Dosage: 1500 MG/KG, QD 3 X 500 MG
     Route: 065
     Dates: start: 20130327

REACTIONS (8)
  - Serum ferritin increased [Unknown]
  - Platelet count decreased [Unknown]
  - Haemoglobin decreased [Unknown]
  - Laboratory test abnormal [Fatal]
  - Gastrointestinal ischaemia [Fatal]
  - Blood bilirubin increased [Recovered/Resolved]
  - Myelodysplastic syndrome [Fatal]
  - Cardiac failure [Fatal]

NARRATIVE: CASE EVENT DATE: 201307
